FAERS Safety Report 9287946 (Version 2)
Quarter: 2013Q4

REPORT INFORMATION
  Report Type: Spontaneous
  Country: IT (occurrence: IT)
  Receive Date: 20130514
  Receipt Date: 20131120
  Transmission Date: 20140711
  Serious: Yes (Other)
  Sender: FDA-Public Use
  Company Number: IT-PFIZER INC-2013147310

PATIENT
  Age: 72 Year
  Sex: Female
  Weight: 60 kg

DRUGS (6)
  1. EPIRUBICIN HCL [Suspect]
     Indication: INVASIVE DUCTAL BREAST CARCINOMA
     Dosage: 120 MG, CYCLIC
     Route: 042
     Dates: start: 20130201, end: 20130315
  2. FLUOROURACIL [Suspect]
     Indication: INVASIVE DUCTAL BREAST CARCINOMA
     Dosage: 800 MG, CYCLIC
     Route: 042
     Dates: start: 20130201, end: 20130315
  3. CYCLOPHOSPHAMIDE [Suspect]
     Indication: INVASIVE DUCTAL BREAST CARCINOMA
     Dosage: 800 MG, UNK
     Route: 042
     Dates: start: 20130201, end: 20130315
  4. TAURO [Concomitant]
     Indication: CHRONIC HEPATITIS C
  5. HEPA-FACTOR [Concomitant]
  6. ACESISTEM [Concomitant]
     Indication: HYPERTENSION

REACTIONS (3)
  - Anaemia [Recovering/Resolving]
  - Neutropenia [Recovering/Resolving]
  - Skin burning sensation [Recovering/Resolving]
